FAERS Safety Report 8977828 (Version 1)
Quarter: 2012Q4

REPORT INFORMATION
  Report Type: 
  Country: IT (occurrence: IT)
  Receive Date: 20121220
  Receipt Date: 20121220
  Transmission Date: 20130627
  Serious: Yes (Other)
  Sender: FDA-Public Use
  Company Number: IT-TEVA-376537ISR

PATIENT
  Age: 71 Year
  Sex: Male
  Weight: 78 kg

DRUGS (3)
  1. FLUOROURACILE [Suspect]
     Indication: PANCREATIC CARCINOMA
     Route: 042
     Dates: start: 20120904, end: 20120904
  2. IRINOTECAN [Suspect]
     Indication: PANCREATIC CARCINOMA
     Route: 042
     Dates: start: 20120904, end: 20120904
  3. OXALIPLATINO [Suspect]
     Indication: PANCREATIC CARCINOMA
     Route: 042
     Dates: start: 20120904, end: 20120904

REACTIONS (1)
  - Febrile neutropenia [Recovering/Resolving]
